FAERS Safety Report 7746359-9 (Version None)
Quarter: 2011Q3

REPORT INFORMATION
  Report Type: 
  Country: None (occurrence: None)
  Receive Date: 20110913
  Receipt Date: 20110902
  Transmission Date: 20111222
  Serious: Yes (Other)
  Sender: FDA-Public Use
  Company Number: DE-ROCHE-801565

PATIENT
  Age: 63 Year
  Sex: Female

DRUGS (5)
  1. DOCETAXEL [Concomitant]
  2. FLUOROURACIL [Concomitant]
  3. EPIRUBICIN [Concomitant]
  4. HERCEPTIN [Suspect]
     Dosage: THERAPY INTERRUPTED IN THE FOURTH CYCLE
     Route: 065
  5. CYCLOPHOSPHAMIDE [Concomitant]

REACTIONS (1)
  - TRANSAMINASES INCREASED [None]
